FAERS Safety Report 15806018 (Version 1)
Quarter: 2019Q1

REPORT INFORMATION
  Report Type: Spontaneous
  Country: US (occurrence: US)
  Receive Date: 20190109
  Receipt Date: 20190109
  Transmission Date: 20190417
  Serious: Yes (Hospitalization, Other)
  Sender: FDA-Public Use
  Company Number: None

PATIENT
  Age: 53 Year
  Sex: Female
  Weight: 90 kg

DRUGS (1)
  1. HYDROCODONE BITARTRATE AND ACETAMINOPHEN [Suspect]
     Active Substance: ACETAMINOPHEN\HYDROCODONE BITARTRATE
     Dates: start: 20180924, end: 20181231

REACTIONS (6)
  - Urticaria [None]
  - Arthritis [None]
  - Pruritus [None]
  - Neuropathy peripheral [None]
  - Hepatic enzyme increased [None]
  - Gait disturbance [None]

NARRATIVE: CASE EVENT DATE: 20180928
